FAERS Safety Report 5057697-5 (Version None)
Quarter: 2006Q2

REPORT INFORMATION
  Report Type: 
  Country: None (occurrence: None)
  Receive Date: 20060627
  Receipt Date: 20060324
  Transmission Date: 20061013
  Serious: No
  Sender: FDA-Public Use
  Company Number: SP00802

PATIENT
  Age: 81 Year
  Sex: Female
  Weight: 50.3493 kg

DRUGS (7)
  1. XIFAXAN [Suspect]
     Indication: ABDOMINAL PAIN UPPER
     Dosage: 400MG/BID,ORAL
     Route: 048
     Dates: start: 20060323
  2. XIFAXAN [Suspect]
     Indication: DIARRHOEA
     Dosage: 400MG/BID,ORAL
     Route: 048
     Dates: start: 20060323
  3. CALAN [Concomitant]
  4. VASOTEC [Concomitant]
  5. BENICAR [Concomitant]
  6. WARFARIN SODIUM [Concomitant]
  7. FOSAMAX [Concomitant]

REACTIONS (3)
  - CONSTIPATION [None]
  - MYALGIA [None]
  - NAUSEA [None]
